FAERS Safety Report 25778578 (Version 1)
Quarter: 2025Q3

REPORT INFORMATION
  Report Type: Spontaneous
  Country: EU (occurrence: EU)
  Receive Date: 20250909
  Receipt Date: 20250909
  Transmission Date: 20251021
  Serious: Yes (Death, Other)
  Sender: BRISTOL-MYERS SQUIBB COMPANY
  Company Number: None

PATIENT
  Age: 82 Year
  Sex: Male
  Weight: 60 kg

DRUGS (1)
  1. OPDIVO [Suspect]
     Active Substance: NIVOLUMAB
     Indication: Malignant melanoma
     Dates: start: 20150220, end: 20150305

REACTIONS (3)
  - Cardio-respiratory arrest [Fatal]
  - Blood creatine phosphokinase increased [Fatal]
  - Troponin increased [Fatal]

NARRATIVE: CASE EVENT DATE: 20150319
